FAERS Safety Report 4610737-7 (Version None)
Quarter: 2005Q2

REPORT INFORMATION
  Report Type: 
  Country: None (occurrence: None)
  Receive Date: 20050222
  Receipt Date: 20031230
  Transmission Date: 20051028
  Serious: Yes (Hospitalization)
  Sender: FDA-Public Use
  Company Number: WAES 0311USA01165

PATIENT
  Age: 42 Year
  Sex: Male

DRUGS (2)
  1. PROPECIA [Suspect]
     Indication: ALOPECIA
     Dosage: 1 MG/DAILY/PO
     Route: 048
     Dates: start: 20031001, end: 20030101
  2. PROPECIA [Suspect]
     Indication: MALE PATTERN BALDNESS
     Dosage: 1 MG/DAILY/PO
     Route: 048
     Dates: start: 20031001, end: 20030101

REACTIONS (2)
  - ERECTILE DYSFUNCTION [None]
  - LIBIDO DECREASED [None]
